FAERS Safety Report 6814187-4 (Version None)
Quarter: 2010Q2

REPORT INFORMATION
  Report Type: 
  Country: None (occurrence: None)
  Receive Date: 20100629
  Receipt Date: 20100616
  Transmission Date: 20101027
  Serious: Yes (Life-Threatening, Other)
  Sender: FDA-Public Use
  Company Number: JPI-P-011053

PATIENT
  Age: 72 Year
  Sex: Male

DRUGS (2)
  1. XYREM [Suspect]
     Indication: SLEEP DISORDER
     Dosage: 7 GM (3.5 GM, 2 IN 1 D), ORAL, 7.5 GM (3.75 GM, 2 IN 1 D), ORAL
     Route: 048
     Dates: end: 20100101
  2. XYREM [Suspect]
     Indication: SLEEP DISORDER
     Dosage: 7 GM (3.5 GM, 2 IN 1 D), ORAL, 7.5 GM (3.75 GM, 2 IN 1 D), ORAL
     Route: 048
     Dates: start: 20050519

REACTIONS (2)
  - NEOPLASM MALIGNANT [None]
  - NEUROENDOCRINE TUMOUR [None]
